FAERS Safety Report 25247221 (Version 3)
Quarter: 2025Q2

REPORT INFORMATION
  Report Type: Spontaneous
  Country: US (occurrence: US)
  Receive Date: 20250428
  Receipt Date: 20250609
  Transmission Date: 20250716
  Serious: Yes (Other)
  Sender: PFIZER
  Company Number: US-PFIZER INC-PV202500049716

PATIENT
  Age: 47 Year
  Sex: Female

DRUGS (2)
  1. IBRANCE [Suspect]
     Active Substance: PALBOCICLIB
  2. IBRANCE [Suspect]
     Active Substance: PALBOCICLIB
     Dates: end: 2025

REACTIONS (5)
  - Neutropenia [Unknown]
  - Arthralgia [Unknown]
  - Bone pain [Unknown]
  - Myalgia [Unknown]
  - Fatigue [Unknown]
